FAERS Safety Report 22105593 (Version 2)
Quarter: 2023Q1

REPORT INFORMATION
  Report Type: Spontaneous
  Country: FR (occurrence: FR)
  Receive Date: 20230317
  Receipt Date: 20230322
  Transmission Date: 20230417
  Serious: Yes (Death, Other)
  Sender: FDA-Public Use
  Company Number: FR-CELLTRION INC.-2023FR005296

PATIENT

DRUGS (1)
  1. RITUXIMAB [Suspect]
     Active Substance: RITUXIMAB
     Indication: Cryoglobulinaemia
     Dosage: 375 MG/M2 4 WEEKLY OR 1 G AT DAY 1 AND DAY 15
     Route: 042

REACTIONS (3)
  - Cryoglobulinaemia [Fatal]
  - Condition aggravated [Fatal]
  - Off label use [Unknown]
